FAERS Safety Report 9684468 (Version 2)
Quarter: 2014Q1

REPORT INFORMATION
  Report Type: Spontaneous
  Country: US (occurrence: US)
  Receive Date: 20131112
  Receipt Date: 20140110
  Transmission Date: 20141002
  Serious: Yes (Other)
  Sender: FDA-Public Use
  Company Number: US-PFIZER INC-2013319063

PATIENT
  Age: 59 Year
  Sex: Male
  Weight: 72.56 kg

DRUGS (1)
  1. VIAGRA [Suspect]
     Indication: ERECTILE DYSFUNCTION
     Dosage: DAILY IN 2013 AND EVERY OTHER DAY FOR THE MONTHS OF AUGUST AND SEPTEMBER
     Dates: start: 2013

REACTIONS (2)
  - Retinal tear [Unknown]
  - Vitreous detachment [Unknown]
